FAERS Safety Report 12199829 (Version 3)
Quarter: 2016Q2

REPORT INFORMATION
  Report Type: Report from Study
  Country: US (occurrence: US)
  Receive Date: 20160322
  Receipt Date: 20160419
  Transmission Date: 20160815
  Serious: Yes (Hospitalization, Other)
  Sender: FDA-Public Use
  Company Number: US-ARIAD PHARMACEUTICALS, INC-2015US005019

PATIENT

DRUGS (4)
  1. ICLUSIG [Suspect]
     Active Substance: PONATINIB
     Dosage: 30 MG, QD
     Route: 048
     Dates: start: 20150507, end: 20150611
  2. ICLUSIG [Suspect]
     Active Substance: PONATINIB
     Dosage: 15 MG, QD
     Route: 048
  3. ICLUSIG [Suspect]
     Active Substance: PONATINIB
     Indication: CHRONIC MYELOID LEUKAEMIA
     Dosage: 30 MG, QD
     Route: 048
     Dates: start: 20150417, end: 20150507
  4. ICLUSIG [Suspect]
     Active Substance: PONATINIB
     Dosage: 15 MG, QD
     Route: 048
     Dates: start: 20150618

REACTIONS (23)
  - Hyperlipidaemia [Not Recovered/Not Resolved]
  - Back pain [Unknown]
  - Arthralgia [Unknown]
  - Thrombosis [Not Recovered/Not Resolved]
  - Acute kidney injury [Recovered/Resolved]
  - Oropharyngeal pain [Unknown]
  - Pericarditis [Recovered/Resolved]
  - Stem cell transplant [Unknown]
  - Pneumonia [Not Recovered/Not Resolved]
  - Coronary artery disease [Not Recovered/Not Resolved]
  - Pain [Not Recovered/Not Resolved]
  - Nasal congestion [Unknown]
  - Decreased activity [Unknown]
  - Gastritis [Recovered/Resolved]
  - Dry mouth [Unknown]
  - Myalgia [Unknown]
  - Gout [Recovered/Resolved]
  - Diverticulitis [Recovered/Resolved]
  - Fatigue [Unknown]
  - Transaminases increased [Recovered/Resolved]
  - Neuropathy peripheral [Not Recovered/Not Resolved]
  - Asthenia [Unknown]
  - Hypertension [Not Recovered/Not Resolved]

NARRATIVE: CASE EVENT DATE: 20150827
